FAERS Safety Report 25685432 (Version 1)
Quarter: 2025Q3

REPORT INFORMATION
  Report Type: Report from Study
  Country: CA (occurrence: CA)
  Receive Date: 20250815
  Receipt Date: 20250815
  Transmission Date: 20251020
  Serious: Yes (Other)
  Sender: PFIZER
  Company Number: CA-PFIZER INC-202500162652

PATIENT
  Age: 37 Year
  Sex: Female

DRUGS (6)
  1. ADALIMUMAB [Suspect]
     Active Substance: ADALIMUMAB
     Indication: Ankylosing spondylitis
     Dosage: 40 MG, 1 EVERY 1 WEEK
     Route: 058
  2. ADALIMUMAB [Suspect]
     Active Substance: ADALIMUMAB
  3. BACLOFEN [Concomitant]
     Active Substance: BACLOFEN
     Route: 065
  4. LANSOPRAZOLE [Concomitant]
     Active Substance: LANSOPRAZOLE
     Route: 065
  5. NAPROXEN [Concomitant]
     Active Substance: NAPROXEN
     Route: 065
  6. SULFASALAZINE [Concomitant]
     Active Substance: SULFASALAZINE

REACTIONS (5)
  - Therapeutic response shortened [Unknown]
  - Weight increased [Unknown]
  - Ankylosing spondylitis [Unknown]
  - Vision blurred [Unknown]
  - Intentional product use issue [Unknown]
